FAERS Safety Report 7410096-0 (Version None)
Quarter: 2011Q2

REPORT INFORMATION
  Report Type: 
  Country: None (occurrence: None)
  Receive Date: 20110412
  Receipt Date: 20110330
  Transmission Date: 20111010
  Serious: Yes (Life-Threatening)
  Sender: FDA-Public Use
  Company Number: JP-ROCHE-745987

PATIENT
  Sex: Male
  Weight: 85 kg

DRUGS (13)
  1. ZOMETA [Suspect]
     Indication: METASTASES TO BONE
     Route: 041
     Dates: start: 20100914, end: 20101028
  2. FLUOROURACIL [Concomitant]
     Route: 041
     Dates: start: 20090714, end: 20090908
  3. PROTECADIN [Concomitant]
     Route: 048
  4. AVASTIN [Suspect]
     Route: 041
     Dates: start: 20100413, end: 20101028
  5. ELPLAT [Suspect]
     Route: 041
     Dates: end: 20101028
  6. LOXONIN [Concomitant]
     Route: 048
  7. XELODA [Suspect]
     Indication: LARGE INTESTINE CARCINOMA
     Dosage: NOTE: IT IS ONE ADMINISTERING WEEKLY HOLIDAY MEDICINE FOR TWO WEEKS.
     Route: 048
     Dates: start: 20100209, end: 20101010
  8. ELPLAT [Suspect]
     Indication: LARGE INTESTINE CARCINOMA
     Route: 041
     Dates: start: 20090630, end: 20090908
  9. WARFARIN [Concomitant]
     Route: 048
     Dates: end: 20100920
  10. MOBIC [Concomitant]
     Route: 048
  11. LOPERAMIDE [Concomitant]
     Route: 048
  12. AVASTIN [Suspect]
     Indication: LARGE INTESTINE CARCINOMA
     Route: 041
     Dates: start: 20090714, end: 20090714
  13. CELESTAMINE TAB [Concomitant]
     Route: 048

REACTIONS (6)
  - RENAL FAILURE ACUTE [None]
  - HAEMOLYTIC ANAEMIA [None]
  - BLOOD CREATININE INCREASED [None]
  - DISSEMINATED INTRAVASCULAR COAGULATION [None]
  - URTICARIA [None]
  - PYREXIA [None]
